FAERS Safety Report 12971369 (Version 1)
Quarter: 2016Q4

REPORT INFORMATION
  Report Type: Spontaneous
  Country: US (occurrence: US)
  Receive Date: 20161123
  Receipt Date: 20161123
  Transmission Date: 20170207
  Serious: No
  Sender: FDA-Public Use
  Company Number: US-JAZZ-2016-US-019893

PATIENT
  Sex: Male

DRUGS (11)
  1. FISH OIL [Concomitant]
     Active Substance: FISH OIL
  2. LINZESS [Concomitant]
     Active Substance: LINACLOTIDE
  3. VITAMIN D3 [Concomitant]
     Active Substance: CHOLECALCIFEROL
  4. MAGNESIUM [Concomitant]
     Active Substance: MAGNESIUM
  5. MELATONIN [Concomitant]
     Active Substance: MELATONIN
  6. VITAMIN B12 [Concomitant]
     Active Substance: CYANOCOBALAMIN
  7. XYREM [Suspect]
     Active Substance: SODIUM OXYBATE
     Indication: NARCOLEPSY
     Dosage: 3 G, BID
     Route: 048
     Dates: start: 201608
  8. RESTASIS [Concomitant]
     Active Substance: CYCLOSPORINE
  9. CLONAZEPAM. [Concomitant]
     Active Substance: CLONAZEPAM
  10. TEMAZEPAM. [Concomitant]
     Active Substance: TEMAZEPAM
  11. CYCLOBENZAPRINE [Concomitant]
     Active Substance: CYCLOBENZAPRINE

REACTIONS (2)
  - Ear discomfort [Unknown]
  - Nasopharyngitis [Unknown]
